FAERS Safety Report 18942585 (Version 1)
Quarter: 2021Q1

REPORT INFORMATION
  Report Type: Spontaneous
  Country: US (occurrence: US)
  Receive Date: 20210225
  Receipt Date: 20210225
  Transmission Date: 20210420
  Serious: No
  Sender: FDA-Public Use
  Company Number: US-PERRIGO-20US015861

PATIENT
  Age: 70 Year
  Sex: Male
  Weight: 104.31 kg

DRUGS (3)
  1. NAPROXEN SODIUM. [Suspect]
     Active Substance: NAPROXEN SODIUM
     Indication: INSOMNIA
     Dosage: 220 MG, THREE TIMES WEEKLY
     Route: 048
     Dates: start: 2017
  2. NAPROXEN SODIUM. [Suspect]
     Active Substance: NAPROXEN SODIUM
     Indication: PROPHYLAXIS
     Dosage: 660 MG, SINGLE
     Route: 048
     Dates: start: 20201103, end: 20201103
  3. ANTIBIOTICS [Concomitant]
     Active Substance: UNSPECIFIED INGREDIENT
     Indication: INFECTION
     Dosage: UNKNOWN, UNKNOWN
     Route: 065
     Dates: start: 202009

REACTIONS (2)
  - Incorrect dose administered [Recovered/Resolved]
  - Off label use [Not Recovered/Not Resolved]

NARRATIVE: CASE EVENT DATE: 2017
